FAERS Safety Report 21712456 (Version 1)
Quarter: 2022Q4

REPORT INFORMATION
  Report Type: Spontaneous
  Country: US (occurrence: US)
  Receive Date: 20221212
  Receipt Date: 20221212
  Transmission Date: 20230113
  Serious: No
  Sender: FDA-Public Use
  Company Number: US-LEO Pharma-346883

PATIENT
  Age: 69 Year
  Sex: Female

DRUGS (8)
  1. ADBRY [Suspect]
     Active Substance: TRALOKINUMAB-LDRM
     Indication: Dermatitis atopic
     Dosage: DOSAGE : INJECT 4 SYRINGES, 600 MG UNDER THE SKIN ON DAY 1
     Route: 058
     Dates: start: 20221108, end: 20221108
  2. ADBRY [Suspect]
     Active Substance: TRALOKINUMAB-LDRM
     Indication: Dermatitis atopic
     Dosage: DOSAGE : INJECT 4 SYRINGES, 600 MG UNDER THE SKIN ON DAY 1
     Route: 058
     Dates: start: 20221108, end: 20221108
  3. ADBRY [Suspect]
     Active Substance: TRALOKINUMAB-LDRM
     Indication: Dermatitis atopic
     Dosage: DOSAGE : START MAINTENANCE DOSING AS DIRECTED ON DAY 15. INJECT 2 SYRINGES, 300 MG UNDER THE SKIN EV
     Route: 058
  4. ADBRY [Suspect]
     Active Substance: TRALOKINUMAB-LDRM
     Indication: Dermatitis atopic
     Dosage: DOSAGE : START MAINTENANCE DOSING AS DIRECTED ON DAY 15. INJECT 2 SYRINGES, 300 MG UNDER THE SKIN EV
     Route: 058
  5. ADBRY [Suspect]
     Active Substance: TRALOKINUMAB-LDRM
     Indication: Dermatitis atopic
     Dosage: DOSAGE : INJECT 4 SYRINGES, 600 MG UNDER THE SKIN ON DAY 1
     Route: 058
     Dates: start: 20221108, end: 20221108
  6. ADBRY [Suspect]
     Active Substance: TRALOKINUMAB-LDRM
     Indication: Dermatitis atopic
     Dosage: DOSAGE : INJECT 4 SYRINGES, 600 MG UNDER THE SKIN ON DAY 1
     Route: 058
     Dates: start: 20221108, end: 20221108
  7. ADBRY [Suspect]
     Active Substance: TRALOKINUMAB-LDRM
     Indication: Dermatitis atopic
     Dosage: DOSAGE : START MAINTENANCE DOSING AS DIRECTED ON DAY 15. INJECT 2 SYRINGES, 300 MG UNDER THE SKIN EV
     Route: 058
  8. ADBRY [Suspect]
     Active Substance: TRALOKINUMAB-LDRM
     Indication: Dermatitis atopic
     Dosage: DOSAGE : START MAINTENANCE DOSING AS DIRECTED ON DAY 15. INJECT 2 SYRINGES, 300 MG UNDER THE SKIN EV
     Route: 058

REACTIONS (4)
  - Nausea [Not Recovered/Not Resolved]
  - Asthenia [Not Recovered/Not Resolved]
  - Diarrhoea [Not Recovered/Not Resolved]
  - Dizziness [Not Recovered/Not Resolved]
